FAERS Safety Report 10547858 (Version 1)
Quarter: 2014Q4

REPORT INFORMATION
  Report Type: Spontaneous
  Country: US (occurrence: None)
  Receive Date: 20141027
  Receipt Date: 20141027
  Transmission Date: 20150529
  Serious: No
  Sender: FDA-Public Use
  Company Number: None

PATIENT
  Age: 72 Year
  Sex: Male
  Weight: 141 kg

DRUGS (1)
  1. DABIGATRAN [Suspect]
     Active Substance: DABIGATRAN
     Indication: ATRIAL FIBRILLATION
     Route: 048
     Dates: start: 20131107, end: 20131118

REACTIONS (2)
  - Dyspepsia [None]
  - Refusal of treatment by patient [None]

NARRATIVE: CASE EVENT DATE: 20131118
